FAERS Safety Report 5939131-3 (Version None)
Quarter: 2008Q4

REPORT INFORMATION
  Report Type: 
  Country: None (occurrence: None)
  Receive Date: 20081103
  Receipt Date: 20081029
  Transmission Date: 20090506
  Serious: Yes (Hospitalization, Other)
  Sender: FDA-Public Use
  Company Number: FR-BRISTOL-MYERS SQUIBB COMPANY-14389514

PATIENT
  Age: 59 Year
  Sex: Male

DRUGS (5)
  1. COUMADIN [Suspect]
     Indication: DEEP VEIN THROMBOSIS
     Dates: start: 20080601
  2. INNOHEP [Suspect]
     Indication: DEEP VEIN THROMBOSIS
     Dosage: 1 DOSAGE FORM = 0.5(UNIT NOT SPECIFIED).
     Route: 058
     Dates: start: 20080601
  3. NOCTAMIDE [Concomitant]
     Indication: INSOMNIA
  4. LASILIX FAIBLE [Concomitant]
  5. SEROPLEX [Concomitant]
     Indication: MAJOR DEPRESSION

REACTIONS (4)
  - HEPATOCELLULAR INJURY [None]
  - MELAENA [None]
  - PLEURAL EFFUSION [None]
  - PULMONARY EMBOLISM [None]
